FAERS Safety Report 24267919 (Version 1)
Quarter: 2024Q3

REPORT INFORMATION
  Report Type: Spontaneous
  Country: US (occurrence: US)
  Receive Date: 20240830
  Receipt Date: 20240830
  Transmission Date: 20241016
  Serious: Yes (Other)
  Sender: PFIZER
  Company Number: US-PFIZER INC-PV202400111811

PATIENT
  Age: 18 Year
  Sex: Male
  Weight: 67.6 kg

DRUGS (3)
  1. GENOTROPIN [Suspect]
     Active Substance: SOMATROPIN
     Indication: Short stature
     Dosage: 1.1 MG, DAILY
     Route: 058
  2. GENOTROPIN [Suspect]
     Active Substance: SOMATROPIN
     Indication: Growth hormone deficiency
     Dosage: 3.4 MG, DAILY
     Route: 058
     Dates: start: 2024, end: 2024
  3. GENOTROPIN [Suspect]
     Active Substance: SOMATROPIN
     Dosage: 3.6 MG, DAILY
     Route: 058
     Dates: start: 2024

REACTIONS (3)
  - Varicocele [Unknown]
  - Back injury [Unknown]
  - Back pain [Unknown]

NARRATIVE: CASE EVENT DATE: 20240101
